FAERS Safety Report 8010201-1 (Version None)
Quarter: 2011Q4

REPORT INFORMATION
  Report Type: 
  Country: None (occurrence: None)
  Receive Date: 20111228
  Receipt Date: 20111222
  Transmission Date: 20120403
  Serious: Yes (Death, Hospitalization, Other)
  Sender: FDA-Public Use
  Company Number: AU-B.I. PHARMACEUTICALS,INC./RIDGEFIELD-2011-AU-02562AU

PATIENT
  Sex: Male

DRUGS (2)
  1. PRADAXA [Suspect]
     Indication: CEREBROVASCULAR ACCIDENT PROPHYLAXIS
     Dosage: 220 MG
     Dates: start: 20110728
  2. PRADAXA [Suspect]
     Indication: ATRIAL FIBRILLATION

REACTIONS (5)
  - CARDIAC FAILURE CONGESTIVE [None]
  - DEATH [None]
  - RESPIRATORY TRACT INFECTION [None]
  - CARDIAC FAILURE [None]
  - PAIN IN EXTREMITY [None]
